FAERS Safety Report 4733011-7 (Version None)
Quarter: 2005Q3

REPORT INFORMATION
  Report Type: 
  Country: None (occurrence: None)
  Receive Date: 20050801
  Receipt Date: 20050801
  Transmission Date: 20060218
  Serious: Yes (Death, Life-Threatening, Hospitalization)
  Sender: FDA-Public Use
  Company Number: None

PATIENT
  Age: 13 Year
  Sex: Male
  Weight: 92.7 kg

DRUGS (8)
  1. DAUNORUBICIN [Suspect]
     Indication: ACUTE LYMPHOCYTIC LEUKAEMIA
     Dosage: 50 MG Q WEEK INTRAVENOU
     Route: 042
     Dates: start: 20050623, end: 20050707
  2. VINCRISTINE [Suspect]
     Indication: ACUTE LYMPHOCYTIC LEUKAEMIA
     Dosage: 2MG Q WEEK INTRAVENOU
     Route: 042
     Dates: start: 20050623, end: 20050707
  3. CEFEPIME [Concomitant]
  4. VANCOMYCIN [Concomitant]
  5. TOBRAMYCIN [Concomitant]
  6. ALTERNAGEL [Concomitant]
  7. PEPCID [Concomitant]
  8. DIFLUCAN [Concomitant]

REACTIONS (18)
  - ABDOMINAL PAIN [None]
  - BLOOD CULTURE POSITIVE [None]
  - BLOODY DISCHARGE [None]
  - CAECITIS [None]
  - COAGULOPATHY [None]
  - ECCHYMOSIS [None]
  - ENTEROCOCCAL SEPSIS [None]
  - HAEMODIALYSIS [None]
  - HYPERGLYCAEMIA [None]
  - HYPERURICAEMIA [None]
  - HYPOTENSION [None]
  - NAUSEA [None]
  - ORAL INTAKE REDUCED [None]
  - OXYGEN SATURATION DECREASED [None]
  - PERIPHERAL VASCULAR DISORDER [None]
  - RENAL FAILURE [None]
  - STAPHYLOCOCCAL INFECTION [None]
  - TUMOUR LYSIS SYNDROME [None]
